FAERS Safety Report 6020290-1 (Version None)
Quarter: 2008Q4

REPORT INFORMATION
  Report Type: 
  Country: None (occurrence: None)
  Receive Date: 20081223
  Receipt Date: 20081223
  Transmission Date: 20090506
  Serious: Yes (Other)
  Sender: FDA-Public Use
  Company Number: None

PATIENT
  Age: 72 Year
  Sex: Female

DRUGS (9)
  1. RECLAST [Suspect]
  2. PREVACID [Concomitant]
  3. ZETIA [Concomitant]
  4. LESCOL [Concomitant]
  5. CYMBALTA [Concomitant]
  6. TEMAZEPAM [Concomitant]
  7. COMBIVENT [Concomitant]
  8. SKELAXIN [Concomitant]
  9. OXYCONTIN [Concomitant]

REACTIONS (3)
  - ASTHENIA [None]
  - BONE PAIN [None]
  - FATIGUE [None]
